FAERS Safety Report 4605975-3 (Version None)
Quarter: 2005Q1

REPORT INFORMATION
  Report Type: 
  Country: None (occurrence: None)
  Receive Date: 20050311
  Receipt Date: 20050301
  Transmission Date: 20050727
  Serious: Yes (Other)
  Sender: FDA-Public Use
  Company Number: NL-GLAXOSMITHKLINE-B0373782A

PATIENT
  Age: 45 Year
  Sex: Male

DRUGS (2)
  1. ROSIGLITAZONE MALEATE [Suspect]
     Indication: DRUG USE FOR UNKNOWN INDICATION
     Route: 065
     Dates: start: 20050118, end: 20050209
  2. METFORMIN HCL [Concomitant]

REACTIONS (6)
  - ATRIAL FIBRILLATION [None]
  - CHEST DISCOMFORT [None]
  - HANGOVER [None]
  - HEADACHE [None]
  - HEART RATE IRREGULAR [None]
  - PARANOIA [None]
